FAERS Safety Report 9382691 (Version 2)
Quarter: 2013Q3

REPORT INFORMATION
  Report Type: Spontaneous
  Country: PL (occurrence: PL)
  Receive Date: 20130703
  Receipt Date: 20130816
  Transmission Date: 20140515
  Serious: Yes (Other)
  Sender: FDA-Public Use
  Company Number: PL-GLAXOSMITHKLINE-B0904447A

PATIENT
  Age: 76 Year
  Sex: Male

DRUGS (2)
  1. AMOXICILLIN + CLAVULANIC ACID [Suspect]
     Indication: PRODUCT USED FOR UNKNOWN INDICATION
     Route: 065
  2. CEFUROXIM [Suspect]
     Indication: PRODUCT USED FOR UNKNOWN INDICATION
     Route: 065

REACTIONS (1)
  - Nosocomial infection [Unknown]
